FAERS Safety Report 21505520 (Version 1)
Quarter: 2022Q4

REPORT INFORMATION
  Report Type: Spontaneous
  Country: US (occurrence: US)
  Receive Date: 20221026
  Receipt Date: 20221026
  Transmission Date: 20230113
  Serious: No
  Sender: FDA-Public Use
  Company Number: BI-BoehringerIngelheim-2022-BI-198573

PATIENT

DRUGS (1)
  1. OFEV [Suspect]
     Active Substance: NINTEDANIB
     Indication: Product used for unknown indication

REACTIONS (3)
  - Diarrhoea [Recovered/Resolved]
  - Insomnia [Recovered/Resolved]
  - Asthenia [Recovered/Resolved]
